FAERS Safety Report 8416367-3 (Version None)
Quarter: 2012Q2

REPORT INFORMATION
  Report Type: 
  Country: None (occurrence: None)
  Receive Date: 20120606
  Receipt Date: 20120529
  Transmission Date: 20120825
  Serious: Yes (Death, Life-Threatening, Hospitalization)
  Sender: FDA-Public Use
  Company Number: DE-JNJFOC-20120403158

PATIENT
  Sex: Female
  Weight: 60 kg

DRUGS (6)
  1. TORSEMIDE [Concomitant]
  2. METOPROLOL TARTRATE [Concomitant]
  3. METOCLOPRAMIDE [Concomitant]
  4. OXAZEPAM [Concomitant]
  5. RIVAROXABAN [Suspect]
     Indication: CEREBROVASCULAR ACCIDENT PROPHYLAXIS
     Route: 048
     Dates: start: 20120216
  6. RIVAROXABAN [Suspect]
     Indication: ATRIAL FIBRILLATION
     Route: 048
     Dates: start: 20120216

REACTIONS (5)
  - HEAD INJURY [None]
  - LACERATION [None]
  - FALL [None]
  - SUBDURAL HAEMATOMA [None]
  - CEREBRAL HAEMORRHAGE [None]
